APPROVED DRUG PRODUCT: LEVETIRACETAM
Active Ingredient: LEVETIRACETAM
Strength: 750MG
Dosage Form/Route: TABLET, EXTENDED RELEASE;ORAL
Application: A091668 | Product #002
Applicant: SANDOZ INC
Approved: Nov 1, 2012 | RLD: No | RS: No | Type: DISCN